FAERS Safety Report 4699631-3 (Version None)
Quarter: 2005Q2

REPORT INFORMATION
  Report Type: 
  Country: None (occurrence: None)
  Receive Date: 20050623
  Receipt Date: 20050617
  Transmission Date: 20051028
  Serious: Yes (Death, Hospitalization)
  Sender: FDA-Public Use
  Company Number: 200511917GDS

PATIENT
  Age: 83 Year
  Sex: Female

DRUGS (11)
  1. ASPIRIN [Suspect]
     Dosage: ORAL
     Route: 048
     Dates: start: 20050501
  2. TENECTEPLASE [Suspect]
     Dosage: QD, INTRAVENOUS
     Route: 042
     Dates: start: 20050501
  3. CLOPIDOGREL BISULFATE [Suspect]
     Dosage: 75 MG, TOTAL DAILY, ORAL
     Route: 048
     Dates: start: 20050501
  4. HEPARIN [Suspect]
     Dates: start: 20050501
  5. CANDESARTAN [Concomitant]
  6. PANTOPRAZOL [Concomitant]
  7. POTASSIUM CHLORIDE [Concomitant]
  8. OLANZAPINE [Concomitant]
  9. TORSEMIDE [Concomitant]
  10. SPIRONOLACTONE [Concomitant]
  11. ALLOPURINOL [Concomitant]

REACTIONS (1)
  - CEREBRAL HAEMORRHAGE [None]
